FAERS Safety Report 26160346 (Version 1)
Quarter: 2025Q4

REPORT INFORMATION
  Report Type: Spontaneous
  Country: US (occurrence: None)
  Receive Date: 20251216
  Receipt Date: 20251216
  Transmission Date: 20260118
  Serious: No
  Sender: ENDO
  Company Number: US-ENDO USA, INC.-2025-002243

PATIENT
  Sex: Male

DRUGS (5)
  1. XIAFLEX [Suspect]
     Active Substance: COLLAGENASE CLOSTRIDIUM HISTOLYTICUM
     Indication: Peyronie^s disease
     Dosage: 0.58 MILLIGRAM, SINGLE (CYCLE 2, INJECTION 1) (1X ON 2 DAYS, 1-3 DAYS APART EVERY 6 WEEKS)
     Dates: start: 20250818, end: 20250818
  2. XIAFLEX [Suspect]
     Active Substance: COLLAGENASE CLOSTRIDIUM HISTOLYTICUM
     Dosage: 0.58 MILLIGRAM, SINGLE (CYCLE 2, INJECTION 2) (1X ON 2 DAYS, 1-3 DAYS APART EVERY 6 WEEKS)
     Dates: start: 20250820, end: 20250820
  3. XIAFLEX [Suspect]
     Active Substance: COLLAGENASE CLOSTRIDIUM HISTOLYTICUM
     Dosage: 0.58 MILLIGRAM, SINGLE (CYCLE 3, INJECTION 1) (1X ON 2 DAYS, 1-3 DAYS APART EVERY 6 WEEKS)
     Dates: start: 20250920, end: 20250920
  4. XIAFLEX [Suspect]
     Active Substance: COLLAGENASE CLOSTRIDIUM HISTOLYTICUM
     Dosage: 0.58 MILLIGRAM, SINGLE (CYCLE 3, INJECTION 2) (1X ON 2 DAYS, 1-3 DAYS APART EVERY 6 WEEKS)
     Dates: start: 20251003, end: 20251003
  5. XIAFLEX [Suspect]
     Active Substance: COLLAGENASE CLOSTRIDIUM HISTOLYTICUM
     Dosage: 0.58 MILLIGRAM, UNKNOWN (CYCLE 1) (1X ON 2 DAYS, 1-3 DAYS APART EVERY 6 WEEKS)

REACTIONS (4)
  - Abdominal pain upper [Not Recovered/Not Resolved]
  - Change of bowel habit [Not Recovered/Not Resolved]
  - Haematochezia [Not Recovered/Not Resolved]
  - Inappropriate schedule of product administration [Unknown]

NARRATIVE: CASE EVENT DATE: 20250101
